FAERS Safety Report 21573610 (Version 4)
Quarter: 2023Q1

REPORT INFORMATION
  Report Type: Report from Study
  Country: US (occurrence: US)
  Receive Date: 20221109
  Receipt Date: 20230324
  Transmission Date: 20230418
  Serious: No
  Sender: FDA-Public Use
  Company Number: US-ABBVIE-4137803

PATIENT
  Age: 67 Year
  Sex: Female

DRUGS (5)
  1. HUMIRA [Suspect]
     Active Substance: ADALIMUMAB
     Indication: Colitis ulcerative
     Route: 058
  2. HUMIRA [Suspect]
     Active Substance: ADALIMUMAB
     Dosage: 40 MILLIGRAM CF
     Route: 058
  3. HUMIRA [Suspect]
     Active Substance: ADALIMUMAB
     Route: 058
     Dates: start: 20220414
  4. BUDESONIDE [Suspect]
     Active Substance: BUDESONIDE
     Indication: Product used for unknown indication
     Route: 065
  5. TYLENOL [Suspect]
     Active Substance: ACETAMINOPHEN
     Indication: Product used for unknown indication
     Route: 065

REACTIONS (11)
  - Colonoscopy [Unknown]
  - Spinal compression fracture [Unknown]
  - Diarrhoea [Unknown]
  - Constipation [Unknown]
  - Gastric infection [Unknown]
  - Cystitis [Unknown]
  - Dizziness [Unknown]
  - Fall [Unknown]
  - Pyrexia [Unknown]
  - Abdominal pain upper [Unknown]
  - Infection [Unknown]

NARRATIVE: CASE EVENT DATE: 20221215
